FAERS Safety Report 10018011 (Version 1)
Quarter: 2014Q1

REPORT INFORMATION
  Report Type: Spontaneous
  Country: US (occurrence: None)
  Receive Date: 20140313
  Receipt Date: 20140313
  Transmission Date: 20141002
  Serious: Yes (Other)
  Sender: FDA-Public Use
  Company Number: None

PATIENT
  Age: 78 Year
  Sex: Female

DRUGS (6)
  1. IMDUR [Suspect]
     Indication: HYPERTENSION
     Dosage: BY MOUTH
     Dates: start: 20140120, end: 20140122
  2. TANOMIN [Concomitant]
  3. EVISTA [Concomitant]
  4. ZETIA [Concomitant]
  5. POTASSIUM MODS [Concomitant]
  6. VASOTEC [Concomitant]

REACTIONS (4)
  - Headache [None]
  - Neck pain [None]
  - Musculoskeletal pain [None]
  - Head discomfort [None]
